FAERS Safety Report 7709528-X (Version None)
Quarter: 2011Q3

REPORT INFORMATION
  Report Type: 
  Country: None (occurrence: None)
  Receive Date: 20110825
  Receipt Date: 20110817
  Transmission Date: 20111222
  Serious: Yes (Death)
  Sender: FDA-Public Use
  Company Number: IE-JNJFOC-20110809587

PATIENT
  Age: 8 Decade
  Sex: Male

DRUGS (2)
  1. TAPENTADOL [Suspect]
     Indication: PRODUCT USED FOR UNKNOWN INDICATION
     Dosage: 2/DAY
     Route: 048
     Dates: start: 20110101
  2. UNSPECIFED MEDICATIONS [Concomitant]
     Route: 065

REACTIONS (1)
  - DEATH [None]
